FAERS Safety Report 5632768-0 (Version None)
Quarter: 2008Q1

REPORT INFORMATION
  Report Type: 
  Country: None (occurrence: None)
  Receive Date: 20080221
  Receipt Date: 20080121
  Transmission Date: 20080703
  Serious: No
  Sender: FDA-Public Use
  Company Number: US-BAYER-200811951NA

PATIENT
  Age: 17 Year
  Sex: Female
  Weight: 42 kg

DRUGS (2)
  1. YAZ [Suspect]
     Indication: MENSTRUAL DISORDER
     Route: 048
     Dates: start: 20070101
  2. PRILOSEC [Concomitant]

REACTIONS (2)
  - FOOD POISONING [None]
  - VOMITING [None]
